FAERS Safety Report 23515304 (Version 2)
Quarter: 2024Q1

REPORT INFORMATION
  Report Type: Spontaneous
  Country: US (occurrence: US)
  Receive Date: 20240213
  Receipt Date: 20240321
  Transmission Date: 20240409
  Serious: No
  Sender: FDA-Public Use
  Company Number: US-TAKEDA-2024TUS012320

PATIENT
  Sex: Male
  Weight: 100 kg

DRUGS (7)
  1. GAMMAGARD LIQUID [Suspect]
     Active Substance: HUMAN IMMUNOGLOBULIN G
     Indication: Neuropathy peripheral
     Dosage: UNK
     Route: 065
  2. LEVOTHYROXINE [Concomitant]
     Active Substance: LEVOTHYROXINE\LEVOTHYROXINE SODIUM
  3. OXCARBAZEPINE [Concomitant]
     Active Substance: OXCARBAZEPINE
  4. CLONAZEPAM [Concomitant]
     Active Substance: CLONAZEPAM
  5. VITAMIN B [Concomitant]
     Active Substance: VITAMIN B
  6. GABAPENTIN [Concomitant]
     Active Substance: GABAPENTIN
  7. FUROSEMIDE [Concomitant]
     Active Substance: FUROSEMIDE

REACTIONS (6)
  - Food interaction [Unknown]
  - Nipple pain [Unknown]
  - Abdominal discomfort [Unknown]
  - Abdominal pain upper [Unknown]
  - Chest pain [Unknown]
  - Product use in unapproved indication [Unknown]
